FAERS Safety Report 5637578-6 (Version None)
Quarter: 2008Q1

REPORT INFORMATION
  Report Type: 
  Country: None (occurrence: None)
  Receive Date: 20080219
  Receipt Date: 20080204
  Transmission Date: 20080703
  Serious: Yes (Other)
  Sender: FDA-Public Use
  Company Number: 2008BI002846

PATIENT
  Age: 66 Year
  Sex: Female
  Weight: 72.5755 kg

DRUGS (2)
  1. AVONEX [Suspect]
     Indication: MULTIPLE SCLEROSIS
     Dosage: 30 UG;QW;IM
     Route: 030
     Dates: start: 20030101, end: 20030101
  2. RHINOCORT [Concomitant]

REACTIONS (13)
  - ASTHMA [None]
  - BLINDNESS UNILATERAL [None]
  - CHRONIC OBSTRUCTIVE PULMONARY DISEASE [None]
  - EAR INFECTION [None]
  - HEADACHE [None]
  - INFLUENZA [None]
  - MEMORY IMPAIRMENT [None]
  - NASOPHARYNGITIS [None]
  - NEOPLASM [None]
  - PAIN [None]
  - RETINAL DETACHMENT [None]
  - SLEEP DISORDER [None]
  - UVEITIS [None]
